FAERS Safety Report 8504408-4 (Version None)
Quarter: 2012Q3

REPORT INFORMATION
  Report Type: 
  Country: None (occurrence: None)
  Receive Date: 20120711
  Receipt Date: 20120709
  Transmission Date: 20120928
  Serious: No
  Sender: FDA-Public Use
  Company Number: US-PFIZER INC-2012138612

PATIENT
  Sex: Male
  Weight: 87 kg

DRUGS (4)
  1. ACCUPRIL [Suspect]
     Indication: HYPERTENSION
     Dosage: 20 MG, 2X/DAY
     Route: 048
     Dates: start: 20120424, end: 20120605
  2. NORVASC [Concomitant]
     Indication: HYPERTENSION
     Dosage: 5 MG, 1X/DAY
     Dates: start: 20120508
  3. PROVENTIL GENTLEHALER [Concomitant]
     Indication: BRONCHOSPASM
     Dosage: 2 PUFFS INHALATION EVERY 4 HOURS AS NEEDED
     Dates: start: 20120510
  4. PROVENTIL GENTLEHALER [Concomitant]
     Indication: EMPHYSEMA

REACTIONS (2)
  - COUGH [None]
  - WEIGHT DECREASED [None]
